FAERS Safety Report 5412763-7 (Version None)
Quarter: 2007Q3

REPORT INFORMATION
  Report Type: 
  Country: None (occurrence: None)
  Receive Date: 20070809
  Receipt Date: 20070724
  Transmission Date: 20080115
  Serious: Yes (Hospitalization)
  Sender: FDA-Public Use
  Company Number: 100#08#2007-02871

PATIENT
  Age: 69 Year
  Sex: Male

DRUGS (1)
  1. AMIODARONE HCL [Suspect]
     Indication: CARDIOMYOPATHY
     Dates: start: 19930801

REACTIONS (5)
  - AUTOANTIBODY POSITIVE [None]
  - HYPERTHYROIDISM [None]
  - HYPOTHYROIDISM [None]
  - MULTIPLE MYELOMA [None]
  - NORMOCHROMIC NORMOCYTIC ANAEMIA [None]
